FAERS Safety Report 25978504 (Version 1)
Quarter: 2025Q4

REPORT INFORMATION
  Report Type: Spontaneous
  Country: BR (occurrence: BR)
  Receive Date: 20251030
  Receipt Date: 20251030
  Transmission Date: 20260118
  Serious: Yes (Other)
  Sender: Onesource Specialty Pharma
  Company Number: BR-STRIDES ARCOLAB LIMITED-2025OS001055

PATIENT
  Age: 33 Year
  Sex: Male

DRUGS (1)
  1. OMEGA-3-ACID ETHYL ESTERS [Suspect]
     Active Substance: OMEGA-3-ACID ETHYL ESTERS
     Indication: Nephropathy
     Dosage: UNK
     Route: 065

REACTIONS (3)
  - Chronic kidney disease [None]
  - Disease progression [None]
  - Off label use [Unknown]
